FAERS Safety Report 11420002 (Version 1)
Quarter: 2015Q3

REPORT INFORMATION
  Report Type: Spontaneous
  Country: US (occurrence: None)
  Receive Date: 20150825
  Receipt Date: 20150825
  Transmission Date: 20151125
  Serious: Yes (Hospitalization)
  Sender: FDA-Public Use
  Company Number: None

PATIENT
  Age: 72 Year
  Sex: Male
  Weight: 87.7 kg

DRUGS (13)
  1. NAPROXEN. [Concomitant]
     Active Substance: NAPROXEN
  2. DRONEDARONE [Concomitant]
     Active Substance: DRONEDARONE
  3. ADVAIR DISKUS [Concomitant]
     Active Substance: FLUTICASONE PROPIONATE\SALMETEROL XINAFOATE
  4. FISH OIL [Concomitant]
     Active Substance: FISH OIL
  5. CALCIUM-VITAMIN D [Concomitant]
  6. CLOPIDOGREL [Concomitant]
     Active Substance: CLOPIDOGREL BISULFATE
  7. ROSUVASTATIN [Concomitant]
     Active Substance: ROSUVASTATIN
  8. DOXAZOSIN [Concomitant]
     Active Substance: DOXAZOSIN\DOXAZOSIN MESYLATE
  9. XARELTO [Suspect]
     Active Substance: RIVAROXABAN
     Indication: ATRIAL FIBRILLATION
     Route: 048
     Dates: start: 20150717, end: 20150810
  10. FINASTERIDE. [Concomitant]
     Active Substance: FINASTERIDE
  11. METROPROLOL SUCCINATE [Concomitant]
  12. TADALAFIL [Concomitant]
     Active Substance: TADALAFIL
  13. PANTOPRAZOLE [Concomitant]
     Active Substance: PANTOPRAZOLE SODIUM

REACTIONS (5)
  - Fatigue [None]
  - Gastrointestinal haemorrhage [None]
  - Diverticulum intestinal [None]
  - Hypotension [None]
  - Appendicitis [None]

NARRATIVE: CASE EVENT DATE: 20150810
